FAERS Safety Report 18518476 (Version 1)
Quarter: 2020Q4

REPORT INFORMATION
  Report Type: Spontaneous
  Country: US (occurrence: US)
  Receive Date: 20201118
  Receipt Date: 20201118
  Transmission Date: 20210114
  Serious: Yes (Hospitalization, Other)
  Sender: FDA-Public Use
  Company Number: US-SA-2020SA319387

PATIENT

DRUGS (6)
  1. LEFLUNOMIDE. [Suspect]
     Active Substance: LEFLUNOMIDE
     Dosage: UNK
  2. LEVOFLOXACIN. [Suspect]
     Active Substance: LEVOFLOXACIN
  3. METHYLPREDNISOLONE. [Suspect]
     Active Substance: METHYLPREDNISOLONE
  4. HYDROXYCHLOROQUINE [Suspect]
     Active Substance: HYDROXYCHLOROQUINE
  5. METHOTREXATE. [Suspect]
     Active Substance: METHOTREXATE
     Dosage: UNK
  6. PLAQUINOL [Suspect]
     Active Substance: HYDROXYCHLOROQUINE SULFATE

REACTIONS (7)
  - Urticaria [Unknown]
  - Psoriasis [Unknown]
  - Gastric disorder [Unknown]
  - Prostate cancer [Recovering/Resolving]
  - Septic shock [Unknown]
  - Inguinal hernia [Unknown]
  - Pneumonitis [Unknown]
